FAERS Safety Report 8257553-5 (Version None)
Quarter: 2012Q1

REPORT INFORMATION
  Report Type: 
  Country: None (occurrence: None)
  Receive Date: 20120330
  Receipt Date: 20120330
  Transmission Date: 20120608
  Serious: Yes (Hospitalization)
  Sender: FDA-Public Use
  Company Number: None

PATIENT
  Sex: Female
  Weight: 104.3273 kg

DRUGS (1)
  1. PRADAXA [Suspect]
     Indication: ANTICOAGULANT THERAPY
     Dosage: 150MG 2 X A DAY
     Dates: start: 20120206, end: 20120209

REACTIONS (7)
  - ASTHENIA [None]
  - ABDOMINAL PAIN UPPER [None]
  - NAUSEA [None]
  - CONFUSIONAL STATE [None]
  - APHASIA [None]
  - DIZZINESS [None]
  - RECTAL HAEMORRHAGE [None]
